FAERS Safety Report 10073765 (Version 1)
Quarter: 2014Q2

REPORT INFORMATION
  Report Type: Spontaneous
  Country: US (occurrence: US)
  Receive Date: 20140411
  Receipt Date: 20140411
  Transmission Date: 20141212
  Serious: Yes (Hospitalization)
  Sender: FDA-Public Use
  Company Number: US-BAXTER-2014BAX017257

PATIENT
  Sex: Male

DRUGS (2)
  1. DIANEAL LOW CALCIUM [Suspect]
     Indication: RENAL FAILURE CHRONIC
     Route: 033
  2. BACLOFEN [Suspect]
     Indication: HICCUPS
     Route: 048
     Dates: start: 20140328, end: 20140328

REACTIONS (4)
  - Hypersomnia [Recovered/Resolved]
  - Mental status changes [Recovered/Resolved]
  - Drug hypersensitivity [Recovered/Resolved]
  - Hiccups [Recovered/Resolved]
